FAERS Safety Report 9509183 (Version 1)
Quarter: 2013Q3

REPORT INFORMATION
  Report Type: Spontaneous
  Country: US (occurrence: US)
  Receive Date: 20130909
  Receipt Date: 20130909
  Transmission Date: 20140515
  Serious: No
  Sender: FDA-Public Use
  Company Number: US-BRISTOL-MYERS SQUIBB COMPANY-19026210

PATIENT
  Sex: Male

DRUGS (3)
  1. ABILIFY TABS 5 MG [Suspect]
     Indication: BIPOLAR DISORDER
  2. LAMOTRIGINE [Concomitant]
  3. LORAZEPAM [Concomitant]

REACTIONS (4)
  - Tremor [Unknown]
  - Hypoaesthesia [Unknown]
  - Drooling [Unknown]
  - Disorientation [Unknown]
